FAERS Safety Report 16633268 (Version 1)
Quarter: 2019Q3

REPORT INFORMATION
  Report Type: Spontaneous
  Country: US (occurrence: US)
  Receive Date: 20190725
  Receipt Date: 20190725
  Transmission Date: 20191004
  Serious: No
  Sender: FDA-Public Use
  Company Number: US-TARO-2018TAR00621

PATIENT
  Age: 47 Year
  Sex: Female
  Weight: 99.77 kg

DRUGS (2)
  1. LIDOCAINE PATCHES [Concomitant]
     Active Substance: LIDOCAINE
  2. LIDOCAINE 7%/TETRACAINE 7% CREAM [Suspect]
     Active Substance: LIDOCAINE\TETRACAINE
     Dosage: A LITTLE BIT ON A FEW AREAS ON BOTH FEET, ^A COUPLE TIMES A DAY^
     Route: 061
     Dates: start: 20180820, end: 20180823

REACTIONS (2)
  - Blister [Not Recovered/Not Resolved]
  - Off label use [Recovered/Resolved]

NARRATIVE: CASE EVENT DATE: 20180820
